FAERS Safety Report 18449441 (Version 2)
Quarter: 2020Q4

REPORT INFORMATION
  Report Type: Spontaneous
  Country: US (occurrence: US)
  Receive Date: 20201030
  Receipt Date: 20201120
  Transmission Date: 20210114
  Serious: No
  Sender: FDA-Public Use
  Company Number: US-JNJFOC-20201037772

PATIENT
  Age: 49 Year
  Sex: Male

DRUGS (6)
  1. SPRAVATO [Suspect]
     Active Substance: ESKETAMINE
     Indication: DEPRESSION
     Dates: start: 20191022, end: 20191022
  2. SPRAVATO [Suspect]
     Active Substance: ESKETAMINE
     Dosage: 84MG, MOST RECENT
     Dates: start: 20201016, end: 20201016
  3. SPRAVATO [Suspect]
     Active Substance: ESKETAMINE
     Dosage: 56MG, 17 TOTAL DOSES
     Dates: start: 20191025, end: 20191227
  4. SPRAVATO [Suspect]
     Active Substance: ESKETAMINE
     Dosage: 56MG, 3 TOTAL DOSES
     Dates: start: 20200529, end: 20200605
  5. SPRAVATO [Suspect]
     Active Substance: ESKETAMINE
     Dosage: 84MG, 22 TOTAL DOSES
     Dates: start: 20200612, end: 20201002
  6. SPRAVATO [Suspect]
     Active Substance: ESKETAMINE
     Dosage: 84MG, 10 TOTAL DOSES
     Dates: start: 20200103, end: 20200313

REACTIONS (1)
  - Muscle strain [Unknown]
